FAERS Safety Report 14270209 (Version 3)
Quarter: 2018Q1

REPORT INFORMATION
  Report Type: Spontaneous
  Country: FR (occurrence: FR)
  Receive Date: 20171211
  Receipt Date: 20180327
  Transmission Date: 20180508
  Serious: Yes (Other)
  Sender: FDA-Public Use
  Company Number: FR-OTSUKA-2016_004911

PATIENT
  Age: 30 Year
  Sex: Female

DRUGS (5)
  1. ABILIFY [Suspect]
     Active Substance: ARIPIPRAZOLE
     Dosage: 10 MG, QD
     Route: 048
     Dates: start: 201503, end: 201508
  2. ABILIFY [Suspect]
     Active Substance: ARIPIPRAZOLE
     Dosage: 2.5 MG, QD
     Route: 048
     Dates: start: 201601
  3. ABILIFY [Suspect]
     Active Substance: ARIPIPRAZOLE
     Dosage: 5 MG, QD
     Route: 048
     Dates: start: 201508, end: 201601
  4. VENTOLINE [Concomitant]
     Active Substance: ALBUTEROL
     Indication: PRODUCT USED FOR UNKNOWN INDICATION
     Dosage: UNK
     Route: 065
  5. ABILIFY [Suspect]
     Active Substance: ARIPIPRAZOLE
     Indication: SCHIZOPHRENIA
     Dosage: 15 MG, QD
     Route: 048
     Dates: start: 201403, end: 201503

REACTIONS (9)
  - Optic neuritis [Recovering/Resolving]
  - Diplopia [Recovering/Resolving]
  - Off label use [Unknown]
  - Visual acuity reduced [Recovering/Resolving]
  - Brain neoplasm [Recovering/Resolving]
  - Eye pain [Recovering/Resolving]
  - Oedema peripheral [Not Recovered/Not Resolved]
  - Sensorimotor disorder [Recovering/Resolving]
  - Xerophthalmia [Recovering/Resolving]

NARRATIVE: CASE EVENT DATE: 201412
